FAERS Safety Report 15569042 (Version 2)
Quarter: 2018Q4

REPORT INFORMATION
  Report Type: Spontaneous
  Country: US (occurrence: US)
  Receive Date: 20181031
  Receipt Date: 20181129
  Transmission Date: 20190205
  Serious: No
  Sender: FDA-Public Use
  Company Number: US-ASTRAZENECA-2018SF41767

PATIENT
  Age: 18992 Day
  Sex: Male
  Weight: 154.2 kg

DRUGS (2)
  1. FASENRA [Suspect]
     Active Substance: BENRALIZUMAB
     Indication: ASTHMA
     Dosage: 30 MG EVERY FOUR WEEKS, AND GOING FORWARD 1 INJECTION EVERY 8 WEEKS
     Route: 058
     Dates: start: 20180828
  2. SINGULAIR [Concomitant]
     Active Substance: MONTELUKAST SODIUM

REACTIONS (1)
  - Eustachian tube dysfunction [Recovered/Resolved]

NARRATIVE: CASE EVENT DATE: 20180828
